FAERS Safety Report 6295663-2 (Version None)
Quarter: 2009Q3

REPORT INFORMATION
  Report Type: 
  Country: None (occurrence: None)
  Receive Date: 20090803
  Receipt Date: 20090803
  Transmission Date: 20100115
  Serious: Yes (Disabling)
  Sender: FDA-Public Use
  Company Number: None

PATIENT
  Age: 84 Year
  Sex: Female
  Weight: 79.3795 kg

DRUGS (2)
  1. WELCHOL [Suspect]
     Indication: BLOOD CHOLESTEROL INCREASED
     Dosage: 6 TABLETS DAILY
     Dates: start: 20081201, end: 20090113
  2. WELCHOL [Suspect]
     Indication: BLOOD CHOLESTEROL INCREASED
     Dosage: 6 TABLETS DAILY
     Dates: start: 20090601, end: 20090801

REACTIONS (5)
  - ARTHRALGIA [None]
  - ASTHENIA [None]
  - BACK PAIN [None]
  - DEPRESSION [None]
  - MUSCULAR WEAKNESS [None]
